FAERS Safety Report 15054068 (Version 3)
Quarter: 2018Q4

REPORT INFORMATION
  Report Type: Spontaneous
  Country: US (occurrence: US)
  Receive Date: 20180622
  Receipt Date: 20181218
  Transmission Date: 20190204
  Serious: Yes (Disabling, Other)
  Sender: FDA-Public Use
  Company Number: US-OTSUKA-2018_015648

PATIENT
  Sex: Male

DRUGS (8)
  1. ABILIFY [Suspect]
     Active Substance: ARIPIPRAZOLE
     Indication: MAJOR DEPRESSION
     Dosage: 7.5 MG, UNK
     Route: 065
     Dates: start: 2008
  2. ABILIFY [Suspect]
     Active Substance: ARIPIPRAZOLE
     Indication: ANXIETY
     Dosage: 15 MG, UNK
     Route: 065
     Dates: end: 2018
  3. EFFEXOR [Concomitant]
     Active Substance: VENLAFAXINE HYDROCHLORIDE
     Indication: PRODUCT USED FOR UNKNOWN INDICATION
     Dosage: UNK
     Route: 065
  4. PAXIL [Concomitant]
     Active Substance: PAROXETINE HYDROCHLORIDE
     Indication: PRODUCT USED FOR UNKNOWN INDICATION
     Dosage: UNK
     Route: 065
  5. XANAX [Concomitant]
     Active Substance: ALPRAZOLAM
     Indication: PRODUCT USED FOR UNKNOWN INDICATION
     Dosage: UNK
     Route: 065
  6. AMBIEN CR [Concomitant]
     Active Substance: ZOLPIDEM TARTRATE
     Indication: PRODUCT USED FOR UNKNOWN INDICATION
     Dosage: 6.25 MG, QD
     Route: 065
  7. ARIPIPRAZOLE. [Concomitant]
     Active Substance: ARIPIPRAZOLE
     Indication: PRODUCT USED FOR UNKNOWN INDICATION
     Dosage: UNK
     Route: 065
     Dates: start: 201505
  8. LEXAPRO [Concomitant]
     Active Substance: ESCITALOPRAM OXALATE
     Indication: PRODUCT USED FOR UNKNOWN INDICATION
     Dosage: 20 MG, QM
     Route: 065

REACTIONS (17)
  - Suicide attempt [Not Recovered/Not Resolved]
  - Condition aggravated [Unknown]
  - Product use in unapproved indication [Unknown]
  - Hypersexuality [Unknown]
  - Emotional distress [Unknown]
  - Compulsive sexual behaviour [Not Recovered/Not Resolved]
  - Compulsive shopping [Not Recovered/Not Resolved]
  - Disability [Unknown]
  - Injury [Unknown]
  - Gambling disorder [Recovered/Resolved]
  - Economic problem [Unknown]
  - Suicidal ideation [Not Recovered/Not Resolved]
  - Sexual dysfunction [Not Recovered/Not Resolved]
  - Eating disorder [Not Recovered/Not Resolved]
  - Anxiety [Unknown]
  - Anhedonia [Unknown]
  - Pain [Unknown]

NARRATIVE: CASE EVENT DATE: 2009
